FAERS Safety Report 5341288-2 (Version None)
Quarter: 2007Q2

REPORT INFORMATION
  Report Type: 
  Country: None (occurrence: None)
  Receive Date: 20070531
  Receipt Date: 20070524
  Transmission Date: 20071010
  Serious: No
  Sender: FDA-Public Use
  Company Number: PHNU2007DE01127

PATIENT
  Age: 47 Year
  Sex: Male
  Weight: 70 kg

DRUGS (5)
  1. ZOMETA [Suspect]
     Indication: MULTIPLE MYELOMA
     Dosage: 4 MG, QMO
     Route: 042
     Dates: start: 20050101
  2. RADIOTHERAPY [Concomitant]
     Indication: PLASMACYTOMA
     Dosage: 44GY AND 30 GY
     Route: 065
     Dates: start: 20060401, end: 20061101
  3. DEXAMETHASONE TAB [Concomitant]
     Indication: PLASMACYTOMA
     Dosage: 40 MG FOR 2 TO 4 DAYS INTERMITTENT
     Route: 065
  4. THALIDOMIDE [Concomitant]
     Indication: PLASMACYTOMA
     Dosage: 200 MG, UNK
     Route: 065
     Dates: start: 20060101, end: 20060101
  5. MELPHALAN [Concomitant]
     Indication: PLASMACYTOMA
     Dosage: 200 MG, UNK
     Route: 065
     Dates: start: 20061101

REACTIONS (4)
  - DENTAL TREATMENT [None]
  - IMPAIRED HEALING [None]
  - TOOTH DISORDER [None]
  - TOOTH EXTRACTION [None]
